FAERS Safety Report 15265848 (Version 1)
Quarter: 2018Q3

REPORT INFORMATION
  Report Type: Spontaneous
  Country: PR (occurrence: PR)
  Receive Date: 20180810
  Receipt Date: 20180810
  Transmission Date: 20181010
  Serious: Yes (Other)
  Sender: FDA-Public Use
  Company Number: PR-PFIZER INC-2018319483

PATIENT
  Age: 60 Year
  Sex: Male
  Weight: 81.63 kg

DRUGS (5)
  1. ZOFRAN [Concomitant]
     Active Substance: ONDANSETRON HYDROCHLORIDE
     Dosage: 4 MG, UNK
     Dates: start: 20180523
  2. VFEND [Suspect]
     Active Substance: VORICONAZOLE
     Indication: BRONCHOPULMONARY ASPERGILLOSIS
     Dosage: 200 MG, 2X/DAY (1 TABLET PO Q12HOURS)
     Route: 048
     Dates: start: 20180425
  3. VFEND [Suspect]
     Active Substance: VORICONAZOLE
     Indication: BLOOD IMMUNOGLOBULIN G DECREASED
  4. ALBUTEROL SULFATE AND IPRATROPIUM BROMIDE [Concomitant]
     Active Substance: ALBUTEROL SULFATE\IPRATROPIUM BROMIDE
     Dosage: UNK (ALBUTEROL?IPRATROPIUM BROMIDE 2.5 MG?0.5 MG3 ML)
     Dates: start: 20180523
  5. VFEND [Suspect]
     Active Substance: VORICONAZOLE
     Indication: BRONCHIECTASIS

REACTIONS (3)
  - Nausea [Unknown]
  - Hypoxia [Unknown]
  - Product use in unapproved indication [Unknown]

NARRATIVE: CASE EVENT DATE: 20180425
